FAERS Safety Report 25579827 (Version 1)
Quarter: 2025Q3

REPORT INFORMATION
  Report Type: Report from Study
  Country: US (occurrence: US)
  Receive Date: 20250718
  Receipt Date: 20250718
  Transmission Date: 20251021
  Serious: Yes (Other)
  Sender: GILEAD
  Company Number: US-GILEAD-2025-0721293

PATIENT
  Age: 57 Year
  Sex: Female

DRUGS (5)
  1. AZTREONAM LYSINE [Suspect]
     Active Substance: AZTREONAM LYSINE
     Indication: Cystic fibrosis
     Dosage: 1 ML VIA ALTERA NEBULIZER THREE TIMES DAILY, EVERY OTHER MONTH
     Route: 055
  2. OMEPRAZOLE [Concomitant]
     Active Substance: OMEPRAZOLE
  3. HERBALS\WITHANIA SOMNIFERA ROOT [Concomitant]
     Active Substance: HERBALS\WITHANIA SOMNIFERA ROOT
  4. VITAMIN B-1 [THIAMINE HYDROCHLORIDE] [Concomitant]
  5. DIETARY SUPPLEMENT [Concomitant]
     Active Substance: DIETARY SUPPLEMENT

REACTIONS (2)
  - Cystic fibrosis [Unknown]
  - Influenza [Unknown]
